FAERS Safety Report 17609586 (Version 4)
Quarter: 2025Q4

REPORT INFORMATION
  Report Type: Spontaneous
  Country: EU (occurrence: EU)
  Receive Date: 20200401
  Receipt Date: 20251007
  Transmission Date: 20260118
  Serious: Yes (Death, Other)
  Sender: ROCHE
  Company Number: EU-CELLTRION HEALTHCARE HUNGARY KFT-2020FR020417

PATIENT
  Age: 49 Year
  Sex: Male

DRUGS (12)
  1. RITUXIMAB [Suspect]
     Active Substance: RITUXIMAB
     Indication: Immunosuppressant drug therapy
     Dosage: 375 MG/M2
     Route: 065
  2. AMPHOTERICIN B [Suspect]
     Active Substance: AMPHOTERICIN B
     Indication: Cutaneous mucormycosis
     Dosage: 3 MG/KG, UNKNOWN FREQ.
     Route: 065
  3. AMPHOTERICIN B [Suspect]
     Active Substance: AMPHOTERICIN B
     Dosage: 10 MG/KG, UNKNOWN FREQ.
     Route: 065
  4. AMPHOTERICIN B [Suspect]
     Active Substance: AMPHOTERICIN B
     Dosage: 3 MG/KG, UNKNOWN FREQ.
     Route: 065
  5. AMPHOTERICIN B [Suspect]
     Active Substance: AMPHOTERICIN B
     Dosage: 10 MG/KG, UNKNOWN FREQ.
     Route: 065
  6. TACROLIMUS [Suspect]
     Active Substance: TACROLIMUS
     Indication: Immunosuppressant drug therapy
     Route: 065
  7. TACROLIMUS [Suspect]
     Active Substance: TACROLIMUS
     Route: 065
  8. THYMOGLOBULIN [Suspect]
     Active Substance: LAPINE T-LYMPHOCYTE IMMUNE GLOBULIN
     Indication: Immunosuppressant drug therapy
     Dosage: 1.25 MG/KG
     Route: 065
  9. MYCOPHENOLIC ACID [Suspect]
     Active Substance: MYCOPHENOLIC ACID
     Indication: Immunosuppressant drug therapy
     Route: 065
  10. MYCOPHENOLIC ACID [Suspect]
     Active Substance: MYCOPHENOLIC ACID
     Route: 065
  11. HEPARIN [Concomitant]
     Active Substance: HEPARIN SODIUM
     Indication: Pulmonary embolism
     Dosage: UNK UNK, UNKNOWN FREQ.
     Route: 065
  12. TAZOBACTAM [Concomitant]
     Active Substance: TAZOBACTAM

REACTIONS (9)
  - Generalised tonic-clonic seizure [Recovered/Resolved]
  - Aspergillus infection [Recovering/Resolving]
  - Pneumonia [Recovering/Resolving]
  - Mucormycosis [Fatal]
  - Urinoma [Unknown]
  - Bronchopulmonary aspergillosis [Recovering/Resolving]
  - Off label use [Unknown]
  - Disseminated mucormycosis [Fatal]
  - Drug ineffective [Fatal]
